FAERS Safety Report 5871340-4 (Version None)
Quarter: 2008Q3

REPORT INFORMATION
  Report Type: 
  Country: None (occurrence: None)
  Receive Date: 20080902
  Receipt Date: 20080414
  Transmission Date: 20090109
  Serious: Yes (Hospitalization)
  Sender: FDA-Public Use
  Company Number: 2008S1003338

PATIENT
  Age: 51 Year
  Sex: Female

DRUGS (1)
  1. PHOSOPHOSODA FLAVOR NOT SPECIFIED (SODIUM PHOSPHATE DIBASIC/SODIUM PHO [Suspect]
     Indication: COLONOSCOPY
     Dosage: 169; PO; UNK
     Route: 048
     Dates: start: 20080318

REACTIONS (6)
  - AGITATION [None]
  - HYPERVENTILATION [None]
  - HYPOKALAEMIA [None]
  - INAPPROPRIATE ANTIDIURETIC HORMONE SECRETION [None]
  - LOSS OF CONSCIOUSNESS [None]
  - UNRESPONSIVE TO STIMULI [None]
